FAERS Safety Report 4928925-9 (Version None)
Quarter: 2006Q1

REPORT INFORMATION
  Report Type: 
  Country: None (occurrence: None)
  Receive Date: 20060301
  Receipt Date: 20060215
  Transmission Date: 20060701
  Serious: Yes (Death, Life-Threatening, Hospitalization)
  Sender: FDA-Public Use
  Company Number: FR-JNJFOC-20060206263

PATIENT
  Age: 87 Year
  Sex: Female

DRUGS (15)
  1. ZALDIAR [Suspect]
     Indication: ARTHRALGIA
     Route: 048
     Dates: start: 20051021, end: 20051206
  2. MYOLASTAN [Suspect]
     Indication: HEPATOMEGALY
     Route: 048
  3. IBUPROFEN [Suspect]
     Indication: ARTHRALGIA
     Route: 048
  4. RENITEC [Suspect]
     Indication: HYPERTENSION
     Route: 048
  5. BI-LIPANOR [Suspect]
     Indication: LIPID METABOLISM DISORDER
     Route: 048
  6. INIPOMP [Suspect]
     Indication: DRUG USE FOR UNKNOWN INDICATION
     Route: 065
  7. ATARAX [Concomitant]
  8. ESOMEPRAZOLE [Concomitant]
  9. MOTILIUM [Concomitant]
  10. AERIUS [Concomitant]
  11. CALDINE [Concomitant]
  12. STRUCTUM [Concomitant]
  13. CONTRAMAL [Concomitant]
  14. ACTONEL [Concomitant]
  15. CALCIT D3 [Concomitant]

REACTIONS (2)
  - LUNG DISORDER [None]
  - TOXIC EPIDERMAL NECROLYSIS [None]
